FAERS Safety Report 18445028 (Version 2)
Quarter: 2020Q4

REPORT INFORMATION
  Report Type: Spontaneous
  Country: PT (occurrence: PT)
  Receive Date: 20201030
  Receipt Date: 20201111
  Transmission Date: 20210114
  Serious: Yes (Other)
  Sender: FDA-Public Use
  Company Number: PT-ACCORD-206791

PATIENT
  Age: 63 Year
  Sex: Male

DRUGS (7)
  1. ALLOPURINOL. [Concomitant]
     Active Substance: ALLOPURINOL
  2. SOLIFENACIN/SOLIFENACIN SUCCINATE [Concomitant]
     Active Substance: SOLIFENACIN SUCCINATE
  3. ATORVASTATIN [Concomitant]
     Active Substance: ATORVASTATIN
  4. IRBESARTAN. [Concomitant]
     Active Substance: IRBESARTAN
  5. CLOPIDOGREL [Concomitant]
     Active Substance: CLOPIDOGREL BISULFATE
  6. EZETIMIBE RATIOPHARM [Suspect]
     Active Substance: EZETIMIBE
     Indication: BLOOD CHOLESTEROL INCREASED
     Dosage: 1 AT NIGHT
     Route: 048
     Dates: start: 20201008, end: 20201008
  7. FLINDIX [Concomitant]

REACTIONS (3)
  - Dizziness [Recovered/Resolved with Sequelae]
  - Malaise [Recovered/Resolved with Sequelae]
  - Tremor [Recovered/Resolved with Sequelae]

NARRATIVE: CASE EVENT DATE: 20201008
